FAERS Safety Report 8025964-9 (Version None)
Quarter: 2012Q1

REPORT INFORMATION
  Report Type: 
  Country: None (occurrence: None)
  Receive Date: 20120105
  Receipt Date: 20110926
  Transmission Date: 20120608
  Serious: No
  Sender: FDA-Public Use
  Company Number: US-ABBOTT-11P-163-0858595-00

PATIENT
  Sex: Female
  Weight: 86.26 kg

DRUGS (3)
  1. ASPIRIN [Concomitant]
     Indication: PAIN
  2. SYNTHROID [Suspect]
     Indication: AUTOIMMUNE THYROIDITIS
  3. SYNTHROID [Suspect]
     Indication: AUTOIMMUNE THYROIDITIS
     Dates: start: 20100601

REACTIONS (4)
  - ARTHRALGIA [None]
  - ASTHENIA [None]
  - PAIN [None]
  - MUSCULOSKELETAL STIFFNESS [None]
